FAERS Safety Report 15036128 (Version 30)
Quarter: 2020Q4

REPORT INFORMATION
  Report Type: Spontaneous
  Country: CA (occurrence: CA)
  Receive Date: 20180620
  Receipt Date: 20201211
  Transmission Date: 20210113
  Serious: Yes (Other)
  Sender: FDA-Public Use
  Company Number: CA-CELLTRION INC.-2018CA020603

PATIENT

DRUGS (31)
  1. INFLECTRA [Suspect]
     Active Substance: INFLIXIMAB-DYYB
     Indication: RHEUMATOID ARTHRITIS
     Dosage: 300 MG, 0, 2, THEN EVERY 8 WEEKS
     Route: 042
     Dates: start: 20180430, end: 20181214
  2. INFLECTRA [Suspect]
     Active Substance: INFLIXIMAB-DYYB
     Dosage: 300 MG, 0, 2, THEN EVERY 8 WEEKS
     Route: 042
     Dates: start: 20180928
  3. INFLECTRA [Suspect]
     Active Substance: INFLIXIMAB-DYYB
     Dosage: 252 MG EVERY 4-6 WEEKS
     Route: 042
     Dates: start: 20190711
  4. INFLECTRA [Suspect]
     Active Substance: INFLIXIMAB-DYYB
     Dosage: 300 MG, 0, 2, THEN EVERY 8 WEEKS
     Route: 042
     Dates: start: 20181214
  5. INFLECTRA [Suspect]
     Active Substance: INFLIXIMAB-DYYB
     Dosage: 500 MG, EVERY 6 WEEKS
     Route: 042
     Dates: start: 20200901
  6. INFLECTRA [Suspect]
     Active Substance: INFLIXIMAB-DYYB
     Dosage: 500 MG EVERY 6 WEEKS
     Route: 042
  7. ARAVA [Concomitant]
     Active Substance: LEFLUNOMIDE
     Dosage: 20 MG, UNK
     Route: 065
  8. HYDROXYCHLOROQUINE [Concomitant]
     Active Substance: HYDROXYCHLOROQUINE
     Dosage: 400 MG, UNK
     Route: 065
  9. INFLECTRA [Suspect]
     Active Substance: INFLIXIMAB-DYYB
     Dosage: 252 MG EVERY 4-6 WEEKS
     Route: 042
     Dates: start: 20190307
  10. INFLECTRA [Suspect]
     Active Substance: INFLIXIMAB-DYYB
     Dosage: 252 MG EVERY 4-6 WEEKS
     Route: 042
     Dates: start: 20190926
  11. INFLECTRA [Suspect]
     Active Substance: INFLIXIMAB-DYYB
     Dosage: 252 MG EVERY 4- 6 WEEKS
     Route: 042
     Dates: start: 20200312
  12. INFLECTRA [Suspect]
     Active Substance: INFLIXIMAB-DYYB
     Dosage: 400 MG EVERY 6 WEEKS
     Route: 042
     Dates: start: 20200611, end: 20200611
  13. INFLECTRA [Suspect]
     Active Substance: INFLIXIMAB-DYYB
     Dosage: 500 MG, EVERY 6 WEEKS
     Route: 042
     Dates: start: 20200723
  14. ARAVA [Concomitant]
     Active Substance: LEFLUNOMIDE
     Dosage: 20 MG, UNK
     Route: 065
  15. INFLECTRA [Suspect]
     Active Substance: INFLIXIMAB-DYYB
     Dosage: 252 MG EVERY 4-6 WEEKS
     Route: 042
     Dates: start: 20190530
  16. ADVIL [Concomitant]
     Active Substance: IBUPROFEN
     Dosage: UNK, AS NEEDED
     Route: 065
  17. INFLECTRA [Suspect]
     Active Substance: INFLIXIMAB-DYYB
     Dosage: 300 MG, 0, 2, THEN EVERY 8 WEEKS
     Route: 042
     Dates: start: 20180514
  18. INFLECTRA [Suspect]
     Active Substance: INFLIXIMAB-DYYB
     Dosage: 252 MG EVERY 4-6 WEEKS
     Route: 042
     Dates: start: 20191111
  19. INFLECTRA [Suspect]
     Active Substance: INFLIXIMAB-DYYB
     Dosage: 400 MG EVERY 4-6 WEEKS
     Route: 042
     Dates: start: 20191219
  20. INFLECTRA [Suspect]
     Active Substance: INFLIXIMAB-DYYB
     Dosage: 400 MG EVERY 4-6 WEEKS
     Route: 042
     Dates: start: 20200129
  21. INFLECTRA [Suspect]
     Active Substance: INFLIXIMAB-DYYB
     Dosage: 500 MG, EVERY 6 WEEKS
     Route: 042
     Dates: start: 20201015
  22. INFLECTRA [Suspect]
     Active Substance: INFLIXIMAB-DYYB
     Dosage: 300 MG, 0, 2, THEN EVERY 8 WEEKS
     Route: 042
     Dates: start: 20180611
  23. INFLECTRA [Suspect]
     Active Substance: INFLIXIMAB-DYYB
     Dosage: 300 MG, 0, 2, THEN EVERY 8 WEEKS
     Route: 042
     Dates: start: 20181109
  24. INFLECTRA [Suspect]
     Active Substance: INFLIXIMAB-DYYB
     Dosage: 252 MG EVERY 4- 6 WEEKS
     Route: 042
     Dates: start: 20200423
  25. METHOTREXATE. [Concomitant]
     Active Substance: METHOTREXATE
     Dosage: 8 TABLETS (2.5 MG)
     Route: 065
  26. INFLECTRA [Suspect]
     Active Substance: INFLIXIMAB-DYYB
     Dosage: 252 MG EVERY 4-6 WEEKS
     Route: 042
     Dates: start: 20190124, end: 20191111
  27. INFLECTRA [Suspect]
     Active Substance: INFLIXIMAB-DYYB
     Dosage: 252 MG EVERY 4-6 WEEKS
     Route: 042
     Dates: start: 20190822
  28. INFLECTRA [Suspect]
     Active Substance: INFLIXIMAB-DYYB
     Dosage: 400 MG (EVERY 6 WEEKS)
     Route: 042
     Dates: start: 20191219, end: 20200611
  29. INFLECTRA [Suspect]
     Active Substance: INFLIXIMAB-DYYB
     Dosage: 500 MG, EVERY 6 WEEKS
     Route: 042
     Dates: start: 20201203
  30. NAPROXEN. [Concomitant]
     Active Substance: NAPROXEN
     Dosage: UNK
     Route: 065
  31. FOLIC ACID. [Concomitant]
     Active Substance: FOLIC ACID
     Dosage: UNK
     Route: 065

REACTIONS (24)
  - Pain in extremity [Unknown]
  - Back pain [Unknown]
  - Hair texture abnormal [Unknown]
  - Headache [Unknown]
  - Infusion site haemorrhage [Recovering/Resolving]
  - Joint swelling [Unknown]
  - Drug ineffective [Unknown]
  - Intentional product use issue [Unknown]
  - Erythema [Unknown]
  - Blood pressure fluctuation [Unknown]
  - Joint injury [Recovering/Resolving]
  - Blood pressure increased [Unknown]
  - Tachycardia [Recovering/Resolving]
  - Peripheral swelling [Unknown]
  - Nausea [Unknown]
  - Dry skin [Unknown]
  - Pruritus [Recovered/Resolved]
  - Pain [Recovering/Resolving]
  - Vomiting [Unknown]
  - Weight increased [Unknown]
  - Injection site pain [Unknown]
  - Off label use [Unknown]
  - Off label use [Unknown]
  - Incorrect dose administered [Unknown]

NARRATIVE: CASE EVENT DATE: 20180514
